FAERS Safety Report 4901398-8 (Version None)
Quarter: 2006Q1

REPORT INFORMATION
  Report Type: 
  Country: None (occurrence: None)
  Receive Date: 20060202
  Receipt Date: 20060202
  Transmission Date: 20060701
  Serious: No
  Sender: FDA-Public Use
  Company Number: None

PATIENT
  Age: 46 Year
  Sex: Female
  Weight: 49.8957 kg

DRUGS (1)
  1. TOPAMAX [Suspect]
     Indication: CONVULSION
     Dosage: 50MG  DAILY  ORALLY
     Route: 048
     Dates: start: 20051218, end: 20060120

REACTIONS (3)
  - ANGLE CLOSURE GLAUCOMA [None]
  - EYE PAIN [None]
  - VISUAL DISTURBANCE [None]
